FAERS Safety Report 15743970 (Version 1)
Quarter: 2018Q4

REPORT INFORMATION
  Report Type: Spontaneous
  Country: JP (occurrence: JP)
  Receive Date: 20181220
  Receipt Date: 20181220
  Transmission Date: 20190205
  Serious: Yes (Hospitalization, Other)
  Sender: FDA-Public Use
  Company Number: JP-HBP-2018JP018047

PATIENT
  Age: 74 Year
  Sex: Male
  Weight: 63.5 kg

DRUGS (10)
  1. LOXOPROFEN SODIUM HYDRATE [Concomitant]
     Active Substance: LOXOPROFEN SODIUM DIHYDRATE
     Indication: BACK PAIN
     Dosage: 180 MILLIGRAM, QD
     Dates: start: 20180927
  2. ALOXI [Suspect]
     Active Substance: PALONOSETRON HYDROCHLORIDE
     Indication: PROPHYLAXIS OF NAUSEA AND VOMITING
     Dosage: UNK
     Route: 042
     Dates: start: 20180927, end: 20181101
  3. HALRACK [Concomitant]
     Active Substance: TRIAZOLAM
     Indication: INSOMNIA
     Dosage: 0.25 MILLIGRAM, QD
     Route: 048
     Dates: start: 20180927
  4. GEMCITABINE [Suspect]
     Active Substance: GEMCITABINE\GEMCITABINE HYDROCHLORIDE
     Indication: PANCREATIC CARCINOMA
     Dosage: 1700 MILLIGRAM, QD
     Route: 041
     Dates: start: 20180927, end: 20181101
  5. DEXART [Suspect]
     Active Substance: DEXAMETHASONE SODIUM PHOSPHATE
     Indication: PROPHYLAXIS OF NAUSEA AND VOMITING
     Dosage: UNK
     Route: 042
     Dates: start: 20180927, end: 20181101
  6. ABRAXANE [Suspect]
     Active Substance: PACLITAXEL
     Indication: PANCREATIC CARCINOMA
     Dosage: 210 MILLIGRAM, QD
     Route: 041
     Dates: start: 20180927, end: 20181101
  7. HUMULIN R [Concomitant]
     Active Substance: INSULIN HUMAN
     Indication: GLYCOSURIA
     Dosage: 6 DOSAGE FORM, QD
     Route: 051
     Dates: start: 20180927
  8. REBAMIPIDE [Concomitant]
     Active Substance: REBAMIPIDE
     Indication: PROPHYLAXIS AGAINST GASTROINTESTINAL ULCER
     Dosage: 300 MILLIGRAM, QD
     Route: 048
     Dates: start: 20180927
  9. BENZALIN                           /00036201/ [Concomitant]
     Active Substance: NITRAZEPAM
     Indication: INSOMNIA
     Dosage: 10 MILLIGRAM, QD
     Route: 048
     Dates: start: 20180927
  10. INSULIN GLARGINE [Concomitant]
     Active Substance: INSULIN GLARGINE
     Indication: GLYCOSURIA
     Dosage: 6 DOSAGE FORM, QD
     Route: 051

REACTIONS (4)
  - Oedema peripheral [Not Recovered/Not Resolved]
  - Neutrophil count decreased [Recovered/Resolved]
  - Venous thrombosis limb [Recovered/Resolved]
  - Cellulitis [Recovered/Resolved]

NARRATIVE: CASE EVENT DATE: 201810
